FAERS Safety Report 5341493-5 (Version None)
Quarter: 2007Q2

REPORT INFORMATION
  Report Type: 
  Country: None (occurrence: None)
  Receive Date: 20070601
  Receipt Date: 20070524
  Transmission Date: 20071010
  Serious: Yes (Other)
  Sender: FDA-Public Use
  Company Number: PHBS2007BR08630

PATIENT
  Age: 84 Year
  Sex: Male
  Weight: 66 kg

DRUGS (3)
  1. DIOVAN AMLO [Suspect]
     Indication: HYPERTENSION
     Dosage: VALS 160 / AMLO 5 MG/DAY
     Route: 048
  2. LORAX [Concomitant]
     Indication: SLEEP DISORDER
     Dosage: 1 TABLET/DAY
     Route: 048
     Dates: start: 20061201
  3. OMEPRAZOLE [Concomitant]
     Indication: GASTRITIS
     Dosage: 40 MG/DAY
     Route: 048

REACTIONS (14)
  - ANAEMIA [None]
  - ANOREXIA [None]
  - BENIGN TUMOUR EXCISION [None]
  - FAECES DISCOLOURED [None]
  - FEELING ABNORMAL [None]
  - HAEMOGLOBIN DECREASED [None]
  - INFLUENZA [None]
  - INSOMNIA [None]
  - MACULAR DEGENERATION [None]
  - NASOPHARYNGITIS [None]
  - NAUSEA [None]
  - RETCHING [None]
  - THYROID DISORDER [None]
  - WOUND HAEMORRHAGE [None]
